FAERS Safety Report 22288357 (Version 1)
Quarter: 2023Q2

REPORT INFORMATION
  Report Type: Spontaneous
  Country: US (occurrence: None)
  Receive Date: 20230504
  Receipt Date: 20230504
  Transmission Date: 20230722
  Serious: No
  Sender: FDA-Public Use
  Company Number: None

PATIENT
  Age: 81 Year
  Sex: Female
  Weight: 58.69 kg

DRUGS (18)
  1. CAPECITABINE [Suspect]
     Active Substance: CAPECITABINE
     Indication: Breast cancer female
     Dosage: FREQUENCY : TWICE A DAY;?
     Route: 048
  2. ASPIRIN [Concomitant]
     Active Substance: ASPIRIN
  3. ATENOLOL [Concomitant]
  4. ATORVASTATIN [Concomitant]
  5. B COMPLEX C [Concomitant]
  6. BUMETANIDE [Concomitant]
     Active Substance: BUMETANIDE
  7. CABDOPA-LEVODOPA [Concomitant]
  8. CALCIUM CITRATE [Concomitant]
     Active Substance: CALCIUM CITRATE
  9. DEXAMETHASONE [Concomitant]
  10. EXEMESTANE [Concomitant]
     Active Substance: EXEMESTANE
  11. HYDROXYZINE [Concomitant]
  12. LASIX [Concomitant]
     Active Substance: FUROSEMIDE
  13. MIRTAZAPINE [Concomitant]
     Active Substance: MIRTAZAPINE
  14. MULTIVITAMIN [Concomitant]
  15. PROCHLORPERAZINE [Concomitant]
     Active Substance: PROCHLORPERAZINE
  16. THIAMINE [Concomitant]
     Active Substance: THIAMINE
  17. VITAMIN D3 [Concomitant]
     Active Substance: CHOLECALCIFEROL
  18. ZOFRAN [Concomitant]
     Active Substance: ONDANSETRON HYDROCHLORIDE

REACTIONS (2)
  - Breast cancer female [None]
  - Malignant neoplasm progression [None]
